FAERS Safety Report 9289180 (Version 1)
Quarter: 2013Q2

REPORT INFORMATION
  Report Type: Spontaneous
  Country: US (occurrence: US)
  Receive Date: 20130514
  Receipt Date: 20130514
  Transmission Date: 20140414
  Serious: No
  Sender: FDA-Public Use
  Company Number: US-ASTRAZENECA-2013SE31510

PATIENT
  Age: 59 Year
  Sex: Male
  Weight: 126.1 kg

DRUGS (1)
  1. TOPROL XR [Suspect]
     Indication: HYPERTENSION
     Route: 048

REACTIONS (4)
  - Medication residue present [Recovered/Resolved]
  - Blood pressure increased [Unknown]
  - Diarrhoea [Unknown]
  - Drug ineffective [Unknown]
